FAERS Safety Report 7374886-5 (Version None)
Quarter: 2011Q1

REPORT INFORMATION
  Report Type: 
  Country: None (occurrence: None)
  Receive Date: 20110325
  Receipt Date: 20110228
  Transmission Date: 20110831
  Serious: No
  Sender: FDA-Public Use
  Company Number: US-B.I. PHARMACEUTICALS,INC./RIDGEFIELD-2011-BP-05677BP

PATIENT
  Sex: Female

DRUGS (7)
  1. PANTOPRAZOLE [Concomitant]
     Indication: HIATUS HERNIA
     Dosage: 40 MG
     Dates: start: 20110101, end: 20110201
  2. VITAMIN D [Concomitant]
     Indication: PROPHYLAXIS
     Dates: start: 20110101, end: 20110201
  3. PRAVASTATIN [Concomitant]
     Indication: BLOOD CHOLESTEROL INCREASED
     Dates: start: 20101201, end: 20110201
  4. CARDIZEM [Concomitant]
     Indication: ATRIAL FIBRILLATION
  5. POTASSIUM CHLORIDE [Concomitant]
     Indication: PROPHYLAXIS
     Dates: start: 20110101, end: 20110201
  6. TRIAMTERENE [Concomitant]
     Indication: HYPERTENSION
  7. PRADAXA [Suspect]
     Indication: ATRIAL FIBRILLATION
     Dosage: 300 MG
     Route: 048
     Dates: start: 20110101

REACTIONS (2)
  - GENITAL RASH [None]
  - DYSURIA [None]
